FAERS Safety Report 20097655 (Version 1)
Quarter: 2021Q4

REPORT INFORMATION
  Report Type: Spontaneous
  Country: US (occurrence: None)
  Receive Date: 20211121
  Receipt Date: 20211121
  Transmission Date: 20220303
  Serious: Yes (Life-Threatening, Disabling, Other)
  Sender: FDA-Public Use
  Company Number: None

PATIENT
  Age: 75 Year
  Sex: Female
  Weight: 67.5 kg

DRUGS (15)
  1. SYNTHROID [Suspect]
     Active Substance: LEVOTHYROXINE SODIUM
     Indication: Hypothyroidism
     Dosage: OTHER QUANTITY : 1 TABLET(S);?FREQUENCY : DAILY;?
     Route: 048
     Dates: start: 19860101, end: 20210617
  2. HYDROCHLOROTHIAZIDE [Concomitant]
     Active Substance: HYDROCHLOROTHIAZIDE
  3. EZETIMIBE [Concomitant]
     Active Substance: EZETIMIBE
  4. AMLODIPINE [Concomitant]
     Active Substance: AMLODIPINE BESYLATE
  5. TIROSINT [Concomitant]
     Active Substance: LEVOTHYROXINE SODIUM
  6. SOTALOL [Concomitant]
     Active Substance: SOTALOL
  7. VITAMINS [Concomitant]
     Active Substance: VITAMINS
  8. VITAMIN D3 [Concomitant]
     Active Substance: CHOLECALCIFEROL
  9. BIOTIN [Concomitant]
     Active Substance: BIOTIN
  10. VITAMIN B12 [Concomitant]
     Active Substance: CYANOCOBALAMIN
  11. UBIQUINOL [Concomitant]
     Active Substance: UBIQUINOL
  12. COENZYME Q10 [Concomitant]
     Active Substance: DIETARY SUPPLEMENT\UBIDECARENONE
  13. VITAMIN C [Concomitant]
     Active Substance: ASCORBIC ACID
  14. MAGNESIUM BESYLATE [Concomitant]
  15. MELATONIN [Concomitant]
     Active Substance: MELATONIN

REACTIONS (7)
  - Arrhythmia [None]
  - Anxiety [None]
  - Thyroxine increased [None]
  - Blood potassium decreased [None]
  - Product quality issue [None]
  - Drug delivery system issue [None]
  - Product storage error [None]

NARRATIVE: CASE EVENT DATE: 20210617
